FAERS Safety Report 22995603 (Version 2)
Quarter: 2023Q4

REPORT INFORMATION
  Report Type: Spontaneous
  Country: US (occurrence: US)
  Receive Date: 20230927
  Receipt Date: 20231102
  Transmission Date: 20240110
  Serious: Yes (Other)
  Sender: FDA-Public Use
  Company Number: US-AMERICAN REGENT INC-2023002253

PATIENT
  Age: 31 Year
  Sex: Male
  Weight: 141 kg

DRUGS (5)
  1. VENOFER [Suspect]
     Active Substance: IRON SUCROSE
     Indication: End stage renal disease
     Dosage: 100 MILLIGRAM
     Dates: start: 20230626
  2. VENOFER [Suspect]
     Active Substance: IRON SUCROSE
     Dosage: UNK
     Route: 042
     Dates: start: 20231025, end: 20231025
  3. MIRCERA [Suspect]
     Active Substance: METHOXY POLYETHYLENE GLYCOL-EPOETIN BETA
     Indication: Nephrogenic anaemia
     Dosage: FIRST DOSE OF MIRCERA (75 MICROGRAM, 1 IN 2 WK)
     Route: 040
     Dates: start: 20230726, end: 20230726
  4. MIRCERA [Suspect]
     Active Substance: METHOXY POLYETHYLENE GLYCOL-EPOETIN BETA
     Dosage: SECOND DOSE OF MIRCERA (75 MICROGRAM, 1 IN 2 WK)
     Route: 040
     Dates: start: 20230809, end: 20230809
  5. MIRCERA [Suspect]
     Active Substance: METHOXY POLYETHYLENE GLYCOL-EPOETIN BETA
     Dosage: THIRD INCREASED DOSE OF MIRCERA (100 MCG, 1 IN 2 WK)
     Route: 040
     Dates: start: 20230823, end: 20230823

REACTIONS (2)
  - Drug hypersensitivity [Recovered/Resolved]
  - Off label use [Unknown]

NARRATIVE: CASE EVENT DATE: 20230626
